FAERS Safety Report 21914403 (Version 1)
Quarter: 2023Q1

REPORT INFORMATION
  Report Type: Spontaneous
  Country: CN (occurrence: CN)
  Receive Date: 20230126
  Receipt Date: 20230126
  Transmission Date: 20230417
  Serious: Yes (Death, Other)
  Sender: FDA-Public Use
  Company Number: CN-AMGEN-CHNSP2023008888

PATIENT

DRUGS (9)
  1. FILGRASTIM [Suspect]
     Active Substance: FILGRASTIM
     Indication: Prophylaxis
     Dosage: 4-5 UG/KG
     Route: 065
  2. DOCETAXEL [Concomitant]
     Active Substance: DOCETAXEL
     Dosage: 75 MILLIGRAM/SQ. METER
  3. CYCLOPHOSPHAMIDE [Concomitant]
     Active Substance: CYCLOPHOSPHAMIDE
  4. DOXORUBICIN [Concomitant]
     Active Substance: DOXORUBICIN
  5. CAPECITABINE [Concomitant]
     Active Substance: CAPECITABINE
     Dosage: 1000 MILLIGRAM/SQ. METER, BID
  6. FLUOROURACIL [Concomitant]
     Active Substance: FLUOROURACIL
  7. THYMIDINE [Concomitant]
     Active Substance: THYMIDINE
  8. EPIRUBICIN [Concomitant]
     Active Substance: EPIRUBICIN
     Dosage: 75 MILLIGRAM/SQ. METER
  9. DEXAMETHASONE [Concomitant]
     Active Substance: DEXAMETHASONE
     Dosage: 7.5 MILLIGRAM, BID

REACTIONS (14)
  - Death [Fatal]
  - Neutropenia [Unknown]
  - Peripheral sensory neuropathy [Unknown]
  - Alanine aminotransferase increased [Unknown]
  - Leukaemia [Unknown]
  - Acute lymphocytic leukaemia [Unknown]
  - Palmar-plantar erythrodysaesthesia syndrome [Unknown]
  - Wound infection [Unknown]
  - Aspartate aminotransferase increased [Unknown]
  - Alopecia [Unknown]
  - Anaemia [Unknown]
  - Vomiting [Unknown]
  - Nausea [Unknown]
  - Diarrhoea [Unknown]
